FAERS Safety Report 12679387 (Version 1)
Quarter: 2016Q3

REPORT INFORMATION
  Report Type: Spontaneous
  Country: US (occurrence: None)
  Receive Date: 20160823
  Receipt Date: 20160823
  Transmission Date: 20161109
  Serious: No
  Sender: FDA-Public Use
  Company Number: None

PATIENT
  Age: 80 Year
  Sex: Female

DRUGS (13)
  1. ONDANSETRON [Concomitant]
     Active Substance: ONDANSETRON
  2. EZETIMIBE. [Concomitant]
     Active Substance: EZETIMIBE
  3. PROCHLORPERAZINE. [Concomitant]
     Active Substance: PROCHLORPERAZINE
  4. TIMOLOL OPTHALMIC [Concomitant]
  5. COENZYME Q10 [Concomitant]
     Active Substance: UBIDECARENONE
  6. DILTIAZEM. [Concomitant]
     Active Substance: DILTIAZEM
  7. DORZOLAMIDE OPTHALMIC [Concomitant]
  8. MULTIVITAMIN [Concomitant]
     Active Substance: VITAMINS
  9. RED YEAST RICE EXTRACT [Concomitant]
  10. BENDAMUSTINE [Suspect]
     Active Substance: BENDAMUSTINE
     Indication: NEOPLASM MALIGNANT
     Dosage: 100 MG/4 ML MONTHLY IV
     Route: 042
     Dates: start: 20160427
  11. ACYCLOVIR. [Concomitant]
     Active Substance: ACYCLOVIR
  12. APIXABAN [Concomitant]
     Active Substance: APIXABAN
  13. CHOLECALCIFEROL [Concomitant]
     Active Substance: CHOLECALCIFEROL

REACTIONS (6)
  - Infusion related reaction [None]
  - Infusion site pain [None]
  - Infusion site swelling [None]
  - Infusion site hypoaesthesia [None]
  - Vein wall hypertrophy [None]
  - Infusion site discomfort [None]

NARRATIVE: CASE EVENT DATE: 20160721
